FAERS Safety Report 24699916 (Version 1)
Quarter: 2024Q4

REPORT INFORMATION
  Report Type: Spontaneous
  Country: US (occurrence: US)
  Receive Date: 20241205
  Receipt Date: 20241205
  Transmission Date: 20250114
  Serious: No
  Sender: ALIMERA
  Company Number: ALIM2400098

PATIENT
  Age: 70 Year
  Sex: Female

DRUGS (1)
  1. YUTIQ [Suspect]
     Active Substance: FLUOCINOLONE ACETONIDE
     Indication: Product used for unknown indication
     Dosage: 0.18 MILLIGRAM, SINGLE - RIGHT EYE
     Route: 031
     Dates: start: 20240403

REACTIONS (2)
  - Circumstance or information capable of leading to medication error [Unknown]
  - Device failure [Unknown]

NARRATIVE: CASE EVENT DATE: 20240403
